FAERS Safety Report 11857475 (Version 1)
Quarter: 2015Q4

REPORT INFORMATION
  Report Type: Spontaneous
  Country: US (occurrence: US)
  Receive Date: 20151221
  Receipt Date: 20151221
  Transmission Date: 20160305
  Serious: No
  Sender: FDA-Public Use
  Company Number: US-FERRINGPH-2015FE02475

PATIENT

DRUGS (1)
  1. LYSTEDA [Suspect]
     Active Substance: TRANEXAMIC ACID
     Indication: MENORRHAGIA
     Dosage: 1350 MG, THREE TIMES DAILY FOR 3-5 DAYS
     Route: 048

REACTIONS (2)
  - Menorrhagia [Unknown]
  - Incorrect dose administered [Not Recovered/Not Resolved]
